FAERS Safety Report 9347460 (Version 1)
Quarter: 2013Q2

REPORT INFORMATION
  Report Type: Spontaneous
  Country: FR (occurrence: FR)
  Receive Date: 20130614
  Receipt Date: 20130614
  Transmission Date: 20140414
  Serious: Yes (Hospitalization)
  Sender: FDA-Public Use
  Company Number: FR-B.I. PHARMACEUTICALS,INC./RIDGEFIELD-2013-FF-01485FF

PATIENT
  Age: 63 Year
  Sex: Male

DRUGS (6)
  1. PRADAXA [Suspect]
     Indication: ATRIAL FIBRILLATION
     Dosage: 220 MG
     Route: 048
     Dates: start: 201301, end: 201304
  2. ATENOLOL [Concomitant]
  3. ESOMEPRAZOLE [Concomitant]
     Indication: GASTROOESOPHAGEAL REFLUX DISEASE
  4. CORDARONE [Concomitant]
  5. FLECAINE [Concomitant]
  6. CRESTOR [Concomitant]

REACTIONS (5)
  - Haematochezia [Recovered/Resolved]
  - Abdominal pain [Recovered/Resolved]
  - General physical health deterioration [Recovered/Resolved]
  - Colitis ischaemic [Unknown]
  - Rectal lesion [Unknown]
